FAERS Safety Report 6354002-9 (Version None)
Quarter: 2009Q3

REPORT INFORMATION
  Report Type: 
  Country: None (occurrence: None)
  Receive Date: 20090909
  Receipt Date: 20090901
  Transmission Date: 20100115
  Serious: Yes (Hospitalization)
  Sender: FDA-Public Use
  Company Number: SPV1-2009-01605

PATIENT
  Age: 34 Year
  Sex: Female
  Weight: 79.4 kg

DRUGS (6)
  1. LIALDA [Suspect]
     Indication: COLITIS ULCERATIVE
     Dosage: 4.8 G, 1X/DAY:QD, ORAL ; 1.2 G, 1X/DAY:QD, ORAL ; 1X/DAY:QD, ORAL
     Route: 048
     Dates: start: 20090718, end: 20090719
  2. LIALDA [Suspect]
     Indication: COLITIS ULCERATIVE
     Dosage: 4.8 G, 1X/DAY:QD, ORAL ; 1.2 G, 1X/DAY:QD, ORAL ; 1X/DAY:QD, ORAL
     Route: 048
     Dates: start: 20090719, end: 20090719
  3. LIALDA [Suspect]
     Indication: COLITIS ULCERATIVE
     Dosage: 4.8 G, 1X/DAY:QD, ORAL ; 1.2 G, 1X/DAY:QD, ORAL ; 1X/DAY:QD, ORAL
     Route: 048
     Dates: start: 20080701
  4. HUMALOG [Concomitant]
  5. LANTUS [Concomitant]
  6. VITAMIN D NOS      (VITAMIN D NOS) [Concomitant]

REACTIONS (5)
  - DIABETIC KETOACIDOSIS [None]
  - DYSPEPSIA [None]
  - HYPERVENTILATION [None]
  - UNDERDOSE [None]
  - VOMITING [None]
